FAERS Safety Report 8885367 (Version 2)
Quarter: 2012Q4

REPORT INFORMATION
  Report Type: 
  Country: US (occurrence: US)
  Receive Date: 20121105
  Receipt Date: 20121127
  Transmission Date: 20130627
  Serious: Yes (Death)
  Sender: FDA-Public Use
  Company Number: US-SANOFI-AVENTIS-2012SA078570

PATIENT
  Age: 62 Year
  Sex: Female

DRUGS (1)
  1. LOVENOX [Suspect]
     Route: 065

REACTIONS (2)
  - Disease progression [Fatal]
  - Pleural effusion [Fatal]
